FAERS Safety Report 18968027 (Version 1)
Quarter: 2021Q1

REPORT INFORMATION
  Report Type: Spontaneous
  Country: US (occurrence: US)
  Receive Date: 20210303
  Receipt Date: 20210303
  Transmission Date: 20210420
  Serious: Yes (Hospitalization)
  Sender: FDA-Public Use
  Company Number: None

PATIENT
  Sex: Female

DRUGS (1)
  1. PLEGRIDY [Suspect]
     Active Substance: PEGINTERFERON BETA-1A
     Indication: MULTIPLE SCLEROSIS
     Dosage: OTHER STRENGTH:125MCG/.5;OTHER DOSE:125MCG;OTHER FREQUENCY:EVERY 14 DAYS;?
     Route: 058
     Dates: start: 20170215

REACTIONS (1)
  - Hip fracture [None]
